FAERS Safety Report 12829348 (Version 1)
Quarter: 2016Q4

REPORT INFORMATION
  Report Type: Spontaneous
  Country: US (occurrence: US)
  Receive Date: 20161007
  Receipt Date: 20161007
  Transmission Date: 20170207
  Serious: No
  Sender: FDA-Public Use
  Company Number: US-SA-2016SA049050

PATIENT
  Age: 67 Year
  Sex: Female

DRUGS (4)
  1. PENICILLIN [Concomitant]
     Active Substance: PENICILLIN
  2. AUBAGIO [Suspect]
     Active Substance: TERIFLUNOMIDE
     Indication: MULTIPLE SCLEROSIS
     Route: 048
     Dates: start: 20150608
  3. CODEINE [Concomitant]
     Active Substance: CODEINE
  4. TRIMETHOPRIM. [Concomitant]
     Active Substance: TRIMETHOPRIM

REACTIONS (1)
  - Alopecia [Unknown]

NARRATIVE: CASE EVENT DATE: 2015
